FAERS Safety Report 16632847 (Version 1)
Quarter: 2019Q3

REPORT INFORMATION
  Report Type: Spontaneous
  Country: US (occurrence: US)
  Receive Date: 20190725
  Receipt Date: 20190725
  Transmission Date: 20191004
  Serious: No
  Sender: FDA-Public Use
  Company Number: US-TEVA-2019-US-1082641

PATIENT
  Sex: Female
  Weight: 81.65 kg

DRUGS (1)
  1. TOLTERODINE TEVA [Suspect]
     Active Substance: TOLTERODINE TARTRATE
     Indication: URINARY INCONTINENCE
     Dosage: 4 MILLIGRAM DAILY;
     Route: 048

REACTIONS (1)
  - Drug ineffective [Unknown]
